FAERS Safety Report 8500581-2 (Version None)
Quarter: 2012Q3

REPORT INFORMATION
  Report Type: 
  Country: None (occurrence: None)
  Receive Date: 20120710
  Receipt Date: 20120703
  Transmission Date: 20120928
  Serious: Yes (Other)
  Sender: FDA-Public Use
  Company Number: US-ROCHE-1074013

PATIENT
  Sex: Male

DRUGS (6)
  1. PREDNISONE [Concomitant]
     Indication: MYASTHENIA GRAVIS
     Dosage: PER DAY
     Route: 048
  2. IMMUNE GLOBULIN INTRAVENOUS (HUMAN) [Concomitant]
     Indication: MYASTHENIA GRAVIS
  3. MESTINON [Concomitant]
     Indication: MYASTHENIA GRAVIS
     Route: 048
  4. STEROID (NAME UNKNOWN) [Concomitant]
  5. CELLCEPT [Suspect]
     Indication: MYASTHENIA GRAVIS
     Route: 048
     Dates: start: 20111101
  6. PREDNISONE [Concomitant]
     Dosage: DOSE WA REDUCED

REACTIONS (4)
  - FACIAL PARESIS [None]
  - LACRIMATION INCREASED [None]
  - EATING DISORDER [None]
  - LIP SWELLING [None]
